FAERS Safety Report 8422164-5 (Version None)
Quarter: 2012Q2

REPORT INFORMATION
  Report Type: 
  Country: None (occurrence: None)
  Receive Date: 20120323
  Receipt Date: 20110309
  Transmission Date: 20120825
  Serious: Yes (Other)
  Sender: FDA-Public Use
  Company Number: 163-21880-11021378

PATIENT
  Age: 90 Year
  Sex: Female
  Weight: 53.0709 kg

DRUGS (2)
  1. REVLIMID [Suspect]
     Indication: LYMPHATIC DISORDER
     Dosage: 10 MG, DAILY FOR 28 DAYS, PO, 5 MG, DAILY FOR 28 DAYS, PO
     Route: 048
     Dates: start: 20100428
  2. REVLIMID [Suspect]
     Indication: LYMPHATIC DISORDER
     Dosage: 10 MG, DAILY FOR 28 DAYS, PO, 5 MG, DAILY FOR 28 DAYS, PO
     Route: 048
     Dates: start: 20080808

REACTIONS (2)
  - WOUND INFECTION [None]
  - FURUNCLE [None]
